FAERS Safety Report 12578031 (Version 2)
Quarter: 2016Q4

REPORT INFORMATION
  Report Type: Report from Study
  Country: GB (occurrence: GB)
  Receive Date: 20160721
  Receipt Date: 20161010
  Transmission Date: 20170207
  Serious: Yes (Other)
  Sender: FDA-Public Use
  Company Number: GB-UCBSA-2016026659

PATIENT
  Age: 71 Year
  Sex: Male

DRUGS (2)
  1. METHOTREXATE. [Concomitant]
     Active Substance: METHOTREXATE
     Indication: RHEUMATOID ARTHRITIS
     Dosage: UNK
  2. CERTOLIZUMAB PEGOL RA [Suspect]
     Active Substance: CERTOLIZUMAB PEGOL
     Indication: RHEUMATOID ARTHRITIS
     Dosage: UNK
     Route: 058
     Dates: start: 20110209

REACTIONS (3)
  - Pulmonary hilum mass [Not Recovered/Not Resolved]
  - Metastatic neoplasm [Not Recovered/Not Resolved]
  - Lymphadenopathy mediastinal [Not Recovered/Not Resolved]

NARRATIVE: CASE EVENT DATE: 20140814
